FAERS Safety Report 6697230-5 (Version None)
Quarter: 2010Q2

REPORT INFORMATION
  Report Type: 
  Country: None (occurrence: None)
  Receive Date: 20100426
  Receipt Date: 20100419
  Transmission Date: 20101027
  Serious: Yes (Other)
  Sender: FDA-Public Use
  Company Number: DE-JNJFOC-20100401854

PATIENT
  Age: 41 Year
  Sex: Female

DRUGS (2)
  1. RISPERDAL [Suspect]
     Indication: DRUG USE FOR UNKNOWN INDICATION
     Route: 048
     Dates: start: 20100101, end: 20100407
  2. RISPERDAL [Suspect]
     Route: 048
     Dates: start: 20100101, end: 20100407

REACTIONS (1)
  - BRADYCARDIA [None]
